FAERS Safety Report 6382926-5 (Version None)
Quarter: 2009Q3

REPORT INFORMATION
  Report Type: 
  Country: None (occurrence: None)
  Receive Date: 20090930
  Receipt Date: 20090929
  Transmission Date: 20100115
  Serious: Yes (Hospitalization)
  Sender: FDA-Public Use
  Company Number: AT-PFIZER INC-2009267371

PATIENT

DRUGS (1)
  1. ZITHROMAX [Suspect]
     Indication: BACTERIAL INFECTION
     Dosage: 500 MG, 1X/DAY
     Route: 048
     Dates: start: 20090901, end: 20090901

REACTIONS (2)
  - GASTROINTESTINAL DISORDER [None]
  - VOMITING [None]
